FAERS Safety Report 8971237 (Version 1)
Quarter: 2012Q4

REPORT INFORMATION
  Report Type: 
  Country: IT (occurrence: IT)
  Receive Date: 20121218
  Receipt Date: 20121218
  Transmission Date: 20130627
  Serious: Yes (Other)
  Sender: FDA-Public Use
  Company Number: IT-ASTELLAS-2012EU010743

PATIENT
  Age: 55 Year
  Sex: Male
  Weight: 60 kg

DRUGS (4)
  1. TACROLIMUS SYSTEMIC [Suspect]
     Indication: LIVER TRANSPLANT
     Dosage: 4 mg, Unknown/D
     Route: 065
  2. TACROLIMUS SYSTEMIC [Suspect]
     Dosage: 12 mg, Unknown/D
     Route: 065
  3. MYCOPHENOLIC ACID [Suspect]
     Indication: IMMUNOSUPPRESSION
     Dosage: 440 mg, Unknown/D
     Route: 065
  4. PREDNISONE [Suspect]
     Indication: IMMUNOSUPPRESSION
     Dosage: 15 mg, Unknown/D
     Route: 065

REACTIONS (10)
  - Medication error [Unknown]
  - Overdose [Unknown]
  - Mental status changes [Recovered/Resolved]
  - Confusional state [Recovered/Resolved]
  - Agitation [Recovered/Resolved]
  - Irritability [Recovered/Resolved]
  - Aggression [Recovered/Resolved]
  - Impulsive behaviour [Recovered/Resolved]
  - Antisocial behaviour [Recovered/Resolved]
  - Self injurious behaviour [Recovered/Resolved]
